FAERS Safety Report 11779173 (Version 1)
Quarter: 2015Q4

REPORT INFORMATION
  Report Type: Spontaneous
  Country: FR (occurrence: FR)
  Receive Date: 20151125
  Receipt Date: 20151125
  Transmission Date: 20160304
  Serious: Yes (Death, Other)
  Sender: FDA-Public Use
  Company Number: FR-CELGENE-FRA-2014124234

PATIENT

DRUGS (1)
  1. REVLIMID [Suspect]
     Active Substance: LENALIDOMIDE
     Indication: MYELODYSPLASTIC SYNDROME
     Dosage: 10 MILLIGRAM
     Route: 048

REACTIONS (19)
  - Pleural effusion [Unknown]
  - Gout [Unknown]
  - Myelodysplastic syndrome [Unknown]
  - Fatigue [Unknown]
  - Completed suicide [Fatal]
  - Cytopenia [Unknown]
  - Deep vein thrombosis [Unknown]
  - Renal failure [Unknown]
  - Death [Fatal]
  - Cardiac failure [Unknown]
  - Metabolic disorder [Unknown]
  - Diarrhoea [Unknown]
  - Acute coronary syndrome [Unknown]
  - Intestinal obstruction [Unknown]
  - Bone marrow failure [Unknown]
  - Rash [Unknown]
  - Neutropenia [Unknown]
  - Thrombocytopenia [Unknown]
  - Dyspnoea [Unknown]
